FAERS Safety Report 23978848 (Version 2)
Quarter: 2024Q3

REPORT INFORMATION
  Report Type: Report from Study
  Country: TH (occurrence: TH)
  Receive Date: 20240615
  Receipt Date: 20240722
  Transmission Date: 20241016
  Serious: Yes (Hospitalization)
  Sender: SANOFI AVENTIS
  Company Number: TH-SA-SAC20240612001015

PATIENT
  Age: 51 Year
  Sex: Female
  Weight: 75 kg

DRUGS (16)
  1. RIFAPENTINE [Suspect]
     Active Substance: RIFAPENTINE
     Indication: Latent tuberculosis
     Dosage: 900 MG, QW
     Route: 048
     Dates: start: 20220512, end: 20220728
  2. ISONIAZID [Suspect]
     Active Substance: ISONIAZID
     Indication: Latent tuberculosis
     Dosage: 900 MG, QW
     Route: 048
     Dates: start: 20220512, end: 20220728
  3. RIFAMPIN [Suspect]
     Active Substance: RIFAMPIN
     Indication: Tuberculosis of peripheral lymph nodes
     Dosage: 600 MG, QD
     Dates: start: 20231123
  4. PYRIDOXINE [Suspect]
     Active Substance: PYRIDOXINE
     Indication: Tuberculosis of peripheral lymph nodes
     Dosage: 100 MG, QD
     Dates: start: 20231123
  5. PYRAZINAMIDE [Suspect]
     Active Substance: PYRAZINAMIDE
     Indication: Tuberculosis of peripheral lymph nodes
     Dosage: 1600 MG OD,
     Dates: start: 20231123
  6. ETHAMBUTOL [Suspect]
     Active Substance: ETHAMBUTOL HYDROCHLORIDE
     Indication: Tuberculosis of peripheral lymph nodes
     Dosage: 1300 MG, QD
     Dates: start: 20231123
  7. ETHAMBUTOL [Suspect]
     Active Substance: ETHAMBUTOL HYDROCHLORIDE
     Dosage: 1200 MG, QD
  8. LEVOFLOXACIN [Suspect]
     Active Substance: LEVOFLOXACIN
     Indication: Tuberculosis of peripheral lymph nodes
     Dosage: 750 MG, QD
  9. TOLPERISONE [Concomitant]
     Active Substance: TOLPERISONE
     Dosage: 50 MG, BID
  10. IVERMECTIN [Concomitant]
     Active Substance: IVERMECTIN
     Dosage: 12 MG, QD
  11. ALBENDAZOLE [Concomitant]
     Active Substance: ALBENDAZOLE
     Dosage: 400 MG, QD
  12. PIPERACILLIN [Concomitant]
     Active Substance: PIPERACILLIN
     Dosage: 4.5 G, QID
  13. FILGRASTIM [Concomitant]
     Active Substance: FILGRASTIM
     Dosage: 300 UG
     Route: 058
  14. ENALAPRIL [Concomitant]
     Active Substance: ENALAPRIL
     Indication: Hypertension
     Dosage: UNK, QD
     Route: 048
     Dates: start: 20210729
  15. DOLUTEGRAVIR\LAMIVUDINE\TENOFOVIR DISOPROXIL FUMARATE [Concomitant]
     Active Substance: DOLUTEGRAVIR\LAMIVUDINE\TENOFOVIR DISOPROXIL FUMARATE
     Indication: HIV infection
     Dosage: UNK, QD
     Route: 048
     Dates: start: 20221110
  16. DOLUTEGRAVIR [Concomitant]
     Active Substance: DOLUTEGRAVIR
     Dosage: 50 MG, QD

REACTIONS (1)
  - Thrombocytopenia [Unknown]

NARRATIVE: CASE EVENT DATE: 20240530
